FAERS Safety Report 7557918-0 (Version None)
Quarter: 2011Q2

REPORT INFORMATION
  Report Type: 
  Country: None (occurrence: None)
  Receive Date: 20110620
  Receipt Date: 20110607
  Transmission Date: 20111010
  Serious: Yes (Other)
  Sender: FDA-Public Use
  Company Number: A0931780A

PATIENT
  Age: 53 Year
  Sex: Male

DRUGS (14)
  1. LOPINAVIR/RITONAVIR [Suspect]
     Indication: HIV INFECTION
     Route: 065
     Dates: start: 20080901
  2. LAMIVUDINE [Suspect]
     Route: 065
     Dates: start: 20060701
  3. MARAVIROC [Suspect]
     Route: 065
     Dates: start: 20080901
  4. DARUNAVIR ETHANOLATE [Suspect]
     Indication: HIV INFECTION
     Route: 065
     Dates: start: 20060701
  5. ETRAVIRINE [Suspect]
     Indication: HIV INFECTION
     Route: 065
     Dates: start: 20060701
  6. LAMIVUDINE [Suspect]
     Indication: HIV INFECTION
     Route: 065
     Dates: start: 20080901
  7. ZIDOVUDINE [Suspect]
     Indication: HIV INFECTION
     Route: 065
     Dates: start: 19960101, end: 19970101
  8. TENOFOVIR DISOPROXIL FUMARATE [Suspect]
     Indication: HIV INFECTION
     Route: 065
     Dates: start: 20080901
  9. TENOFOVIR DISOPROXIL FUMARATE [Suspect]
     Route: 065
     Dates: start: 20060701
  10. MARAVIROC [Suspect]
     Indication: HIV INFECTION
     Route: 065
     Dates: start: 20080901
  11. RALTEGRAVIR [Suspect]
     Indication: HIV INFECTION
     Route: 065
     Dates: start: 20080901
  12. INDINIVIR SULFATE [Suspect]
     Indication: HIV INFECTION
     Route: 065
     Dates: start: 19960101, end: 19970101
  13. RITONAVIR [Suspect]
     Indication: HIV INFECTION
     Route: 065
     Dates: start: 20060701
  14. DIDANOSINE [Suspect]
     Indication: HIV INFECTION
     Route: 065
     Dates: start: 19960101, end: 19970101

REACTIONS (5)
  - THERAPEUTIC RESPONSE DECREASED [None]
  - SQUAMOUS CELL CARCINOMA [None]
  - OESOPHAGEAL CANDIDIASIS [None]
  - PNEUMOCYSTIS JIROVECI PNEUMONIA [None]
  - TONGUE DISORDER [None]
